FAERS Safety Report 9760198 (Version 3)
Quarter: 2013Q4

REPORT INFORMATION
  Report Type: Report from Study
  Country: US (occurrence: US)
  Receive Date: 20131216
  Receipt Date: 20131227
  Transmission Date: 20140711
  Serious: Yes (Hospitalization)
  Sender: FDA-Public Use
  Company Number: US-ACTELION-A-US2013-87042

PATIENT
  Age: 85 Year
  Sex: Male

DRUGS (2)
  1. TRACLEER [Suspect]
     Indication: PULMONARY ARTERIAL HYPERTENSION
     Dosage: UNK
     Route: 048
  2. XARELTO [Concomitant]

REACTIONS (5)
  - Cardiac failure congestive [Unknown]
  - Vomiting [Unknown]
  - Fluid overload [Unknown]
  - Pulmonary oedema [Unknown]
  - Fluid retention [Unknown]
